FAERS Safety Report 5210904-8 (Version None)
Quarter: 2006Q4

REPORT INFORMATION
  Report Type: 
  Country: None (occurrence: None)
  Receive Date: 20061102
  Receipt Date: 20060626
  Transmission Date: 20070319
  Serious: Yes (Other)
  Sender: FDA-Public Use
  Company Number: 28482

PATIENT
  Age: 37 Year
  Sex: Female

DRUGS (2)
  1. METHOTREXATE [Suspect]
     Indication: CHORIOCARCINOMA
  2. METHOTREXATE [Suspect]
     Indication: METASTASIS

REACTIONS (4)
  - DYSPNOEA [None]
  - MUCOSAL INFLAMMATION [None]
  - NEPHROPATHY TOXIC [None]
  - STOMATITIS [None]
